FAERS Safety Report 15710818 (Version 1)
Quarter: 2018Q4

REPORT INFORMATION
  Report Type: Spontaneous
  Country: US (occurrence: US)
  Receive Date: 20181211
  Receipt Date: 20181211
  Transmission Date: 20190205
  Serious: No
  Sender: FDA-Public Use
  Company Number: US-SA-2018SA335414

PATIENT
  Age: 45 Year
  Sex: Female

DRUGS (1)
  1. KEVZARA [Suspect]
     Active Substance: SARILUMAB
     Indication: RHEUMATOID ARTHRITIS
     Dosage: 200 MG, 1X
     Route: 058
     Dates: start: 201811, end: 201811

REACTIONS (9)
  - Swelling [Unknown]
  - Pain [Unknown]
  - Rash [Unknown]
  - Influenza like illness [Unknown]
  - Headache [Unknown]
  - Erythema [Unknown]
  - Malaise [Unknown]
  - Limb discomfort [Unknown]
  - Skin warm [Unknown]

NARRATIVE: CASE EVENT DATE: 2018
